FAERS Safety Report 24362298 (Version 1)
Quarter: 2024Q3

REPORT INFORMATION
  Report Type: Spontaneous
  Country: ZA (occurrence: ZA)
  Receive Date: 20240925
  Receipt Date: 20240925
  Transmission Date: 20241016
  Serious: Yes (Other)
  Sender: PFIZER
  Company Number: ZA-PFIZER INC-202400261488

PATIENT
  Age: 65 Year
  Sex: Male

DRUGS (3)
  1. METHOTREXATE SODIUM [Suspect]
     Active Substance: METHOTREXATE SODIUM
     Indication: Psoriatic arthropathy
     Dosage: 15 MG, WEEKLY
     Dates: start: 202012
  2. COSENTYX [Suspect]
     Active Substance: SECUKINUMAB
     Indication: Psoriatic arthropathy
     Dosage: 150 MG, WEEK0/2/3/4 THEN MONTHLY(4 WEEKLY)
     Route: 058
     Dates: start: 202403
  3. PREDNISONE [Suspect]
     Active Substance: PREDNISONE
     Indication: Psoriatic arthropathy
     Dosage: 5 MG, DAILY
     Dates: start: 202401

REACTIONS (3)
  - Immunodeficiency common variable [Unknown]
  - Hypertension [Unknown]
  - Therapeutic product effect incomplete [Unknown]
